FAERS Safety Report 24854131 (Version 1)
Quarter: 2025Q1

REPORT INFORMATION
  Report Type: Spontaneous
  Country: US (occurrence: US)
  Receive Date: 20250117
  Receipt Date: 20250117
  Transmission Date: 20250409
  Serious: Yes (Death, Hospitalization, Other)
  Sender: APOTEX
  Company Number: US-APOTEX-2025AP000824

PATIENT
  Age: 63 Year
  Sex: Male

DRUGS (1)
  1. METFORMIN [Suspect]
     Active Substance: METFORMIN HYDROCHLORIDE
     Indication: Product used for unknown indication
     Route: 048

REACTIONS (12)
  - Completed suicide [Fatal]
  - Intentional overdose [Fatal]
  - Agitation [Fatal]
  - Aggression [Fatal]
  - Hypotension [Fatal]
  - Depression [Fatal]
  - Blood glucose decreased [Fatal]
  - Hyporesponsive to stimuli [Fatal]
  - Oliguria [Fatal]
  - Toxicity to various agents [Fatal]
  - Mental status changes [Fatal]
  - Lactic acidosis [Fatal]

NARRATIVE: CASE EVENT DATE: 20230101
